FAERS Safety Report 10733111 (Version 2)
Quarter: 2015Q1

REPORT INFORMATION
  Report Type: Spontaneous
  Country: CA (occurrence: CA)
  Receive Date: 20150123
  Receipt Date: 20150309
  Transmission Date: 20150721
  Serious: Yes (Life-Threatening, Hospitalization)
  Sender: FDA-Public Use
  Company Number: CA-ABBVIE-15P-028-1335201-00

PATIENT
  Age: 39 Year
  Sex: Female

DRUGS (3)
  1. NORVIR [Suspect]
     Active Substance: RITONAVIR
     Indication: HIV TEST POSITIVE
     Route: 065
     Dates: start: 20100907, end: 2014
  2. KIVEXA [Suspect]
     Active Substance: ABACAVIR SULFATE\LAMIVUDINE
     Indication: HIV TEST POSITIVE
     Dosage: ABACAVIR 600 MG/ LAMIVUDINE 300 MG
     Route: 065
     Dates: start: 20081029, end: 2014
  3. REYATAZ [Suspect]
     Active Substance: ATAZANAVIR SULFATE
     Indication: HIV TEST POSITIVE
     Route: 065
     Dates: start: 20100907, end: 2014

REACTIONS (2)
  - Transaminases increased [Not Recovered/Not Resolved]
  - Hepatic failure [Not Recovered/Not Resolved]
